FAERS Safety Report 20331883 (Version 1)
Quarter: 2022Q1

REPORT INFORMATION
  Report Type: Spontaneous
  Country: CA (occurrence: CA)
  Receive Date: 20220113
  Receipt Date: 20220113
  Transmission Date: 20220423
  Serious: Yes (Other)
  Sender: FDA-Public Use
  Company Number: CA-PFIZER INC-202101524450

PATIENT
  Age: 61 Year
  Sex: Female

DRUGS (2)
  1. SULFASALAZINE [Suspect]
     Active Substance: SULFASALAZINE
     Dosage: 1 G, 2X/DAY
     Dates: start: 2016
  2. METHOTREXATE [Concomitant]
     Active Substance: METHOTREXATE
     Dosage: 20 MG
     Dates: start: 2017

REACTIONS (3)
  - Haemoglobin decreased [Unknown]
  - Drug ineffective [Unknown]
  - Arthropathy [Unknown]
